FAERS Safety Report 6341098-3 (Version None)
Quarter: 2009Q3

REPORT INFORMATION
  Report Type: 
  Country: None (occurrence: None)
  Receive Date: 20090904
  Receipt Date: 20090824
  Transmission Date: 20100115
  Serious: Yes (Other)
  Sender: FDA-Public Use
  Company Number: B0591206A

PATIENT
  Age: 47 Year
  Sex: Male

DRUGS (5)
  1. LAMIVUDINE + ZIDOVUDINE [Suspect]
     Indication: HIV INFECTION
     Route: 065
  2. NELFINAVIR [Suspect]
     Indication: HIV INFECTION
     Route: 065
  3. HALOPERIDOL [Concomitant]
     Route: 065
  4. BENZTROPINE MESYLATE [Concomitant]
     Route: 065
  5. RISPERIDONE [Concomitant]
     Route: 065

REACTIONS (6)
  - ANAEMIA MACROCYTIC [None]
  - BONE MARROW FAILURE [None]
  - HAEMOGLOBIN DECREASED [None]
  - MARROW HYPERPLASIA [None]
  - MEAN CELL VOLUME INCREASED [None]
  - MEGAKARYOCYTES INCREASED [None]
